FAERS Safety Report 18599946 (Version 1)
Quarter: 2020Q4

REPORT INFORMATION
  Report Type: Spontaneous
  Country: US (occurrence: US)
  Receive Date: 20201210
  Receipt Date: 20201210
  Transmission Date: 20210114
  Serious: No
  Sender: FDA-Public Use
  Company Number: US-ASTRAZENECA-2020SF51675

PATIENT
  Sex: Female

DRUGS (1)
  1. FASENRA [Suspect]
     Active Substance: BENRALIZUMAB
     Dosage: UNKNOWN DOSE AND FREQUENCY
     Route: 058

REACTIONS (4)
  - Headache [Unknown]
  - Chills [Unknown]
  - Nausea [Unknown]
  - Pain [Unknown]
